FAERS Safety Report 5298844-X (Version None)
Quarter: 2007Q2

REPORT INFORMATION
  Report Type: 
  Country: None (occurrence: None)
  Receive Date: 20070411
  Receipt Date: 20070411
  Transmission Date: 20071010
  Serious: Yes (Hospitalization)
  Sender: FDA-Public Use
  Company Number: None

PATIENT
  Age: 70 Year
  Sex: Male
  Weight: 67.2 kg

DRUGS (2)
  1. LEVAQUIN [Suspect]
     Indication: URINARY TRACT INFECTION
     Dosage: 500MG,  500MG QD, ORAL
     Route: 048
     Dates: start: 20070324, end: 20070325
  2. LISINOPRIL [Concomitant]

REACTIONS (1)
  - ANGIOEDEMA [None]
